FAERS Safety Report 18538774 (Version 1)
Quarter: 2020Q4

REPORT INFORMATION
  Report Type: Spontaneous
  Country: US (occurrence: US)
  Receive Date: 20201124
  Receipt Date: 20201124
  Transmission Date: 20210114
  Serious: No
  Sender: FDA-Public Use
  Company Number: US-CIPLA LTD.-2020US01558

PATIENT

DRUGS (2)
  1. GABAPENTIN. [Suspect]
     Active Substance: GABAPENTIN
     Indication: HYPOAESTHESIA
  2. GABAPENTIN. [Suspect]
     Active Substance: GABAPENTIN
     Indication: PARAESTHESIA
     Dosage: 500 MILLIGRAM (ONE IN THE MORNING, ONE IN AFTERNOON AND 3 CAPSULES AT NIGHT), 3 TIMES A DAY
     Route: 048

REACTIONS (3)
  - Product use in unapproved indication [Unknown]
  - Faeces soft [Unknown]
  - Off label use [Unknown]
